FAERS Safety Report 10017775 (Version 1)
Quarter: 2014Q1

REPORT INFORMATION
  Report Type: Spontaneous
  Country: US (occurrence: None)
  Receive Date: 20140313
  Receipt Date: 20140313
  Transmission Date: 20141002
  Serious: Yes (Other)
  Sender: FDA-Public Use
  Company Number: None

PATIENT
  Age: 64 Year
  Sex: Male
  Weight: 73.48 kg

DRUGS (12)
  1. ATORVASTATIN [Suspect]
     Indication: BLOOD CHOLESTEROL INCREASED
     Route: 048
     Dates: start: 20121101, end: 20131101
  2. SIMVASTATIN [Suspect]
  3. SIMVASTATIN [Suspect]
  4. LISINOPRIL [Concomitant]
  5. ASPIRIN [Concomitant]
  6. METOPROLOL SUCCINATE [Concomitant]
  7. FISH OIL [Concomitant]
  8. GARLIC EXTRACT [Concomitant]
  9. CO Q10 [Concomitant]
  10. SAW PALMETTO [Concomitant]
  11. VIT D3 [Concomitant]
  12. PROBIOTIC [Concomitant]

REACTIONS (3)
  - Muscle injury [None]
  - Coronary artery occlusion [None]
  - Muscle spasms [None]
